FAERS Safety Report 22158417 (Version 1)
Quarter: 2023Q1

REPORT INFORMATION
  Report Type: Spontaneous
  Country: FR (occurrence: FR)
  Receive Date: 20230331
  Receipt Date: 20230331
  Transmission Date: 20230417
  Serious: Yes (Disabling)
  Sender: FDA-Public Use
  Company Number: None

PATIENT
  Age: 74 Year
  Sex: Male
  Weight: 93 kg

DRUGS (4)
  1. AMIODARONE [Suspect]
     Active Substance: AMIODARONE
     Indication: Arrhythmia
     Dates: start: 20211218, end: 20220131
  2. ELIQUIS [Concomitant]
     Active Substance: APIXABAN
     Indication: Cardiovascular event prophylaxis
     Dates: start: 20211218
  3. ATORVASTATIN [Concomitant]
     Active Substance: ATORVASTATIN
     Indication: Dyslipidaemia
  4. KARDEGIC [Concomitant]
     Active Substance: ASPIRIN DL-LYSINE
     Indication: Cardiovascular event prophylaxis
     Dosage: POWDER FOR ORAL SOLUTION IN SACHET-DOSE
     Dates: start: 20211218

REACTIONS (1)
  - Anti-neutrophil cytoplasmic antibody positive vasculitis [Not Recovered/Not Resolved]

NARRATIVE: CASE EVENT DATE: 20220107
